FAERS Safety Report 5768217-1 (Version None)
Quarter: 2008Q2

REPORT INFORMATION
  Report Type: 
  Country: None (occurrence: None)
  Receive Date: 20080612
  Receipt Date: 20080604
  Transmission Date: 20081010
  Serious: Yes (Hospitalization)
  Sender: FDA-Public Use
  Company Number: US-MERCK-0806USA00852

PATIENT
  Age: 18 Year
  Sex: Male

DRUGS (4)
  1. SINGULAIR [Suspect]
     Indication: RHINITIS ALLERGIC
     Route: 048
     Dates: start: 20060101
  2. SINGULAIR [Suspect]
     Indication: ASTHMA
     Route: 048
     Dates: start: 20060101
  3. PROZAC [Concomitant]
     Route: 065
  4. RISPERDAL [Concomitant]
     Route: 065

REACTIONS (1)
  - MENTAL DISORDER [None]
